FAERS Safety Report 9778947 (Version 2)
Quarter: 2013Q4

REPORT INFORMATION
  Report Type: Report from Study
  Country: JP (occurrence: JP)
  Receive Date: 20131223
  Receipt Date: 20131223
  Transmission Date: 20140711
  Serious: Yes (Hospitalization)
  Sender: FDA-Public Use
  Company Number: JP-UCBSA-094309

PATIENT
  Age: 73 Year
  Sex: Male
  Weight: 62 kg

DRUGS (6)
  1. CIMZIA [Suspect]
     Indication: RHEUMATOID ARTHRITIS
     Route: 058
     Dates: start: 20130702
  2. CIMZIA [Suspect]
     Indication: RHEUMATOID ARTHRITIS
     Route: 058
     Dates: start: 20130522, end: 20130618
  3. CELECOX [Concomitant]
     Dosage: DAILY DOSE: 200 MG
     Route: 048
  4. BAKTAR [Concomitant]
     Dosage: DAILY DOSE: 2 DF
     Route: 048
  5. PREDOHAN [Concomitant]
     Dosage: DAILY DOSE: 2.5 MG
     Route: 048
  6. FAMOTIDINE [Concomitant]
     Dosage: DAILY DOSE: 20 MG
     Route: 048

REACTIONS (1)
  - Pyrexia [Recovered/Resolved]
